FAERS Safety Report 9708995 (Version 1)
Quarter: 2013Q4

REPORT INFORMATION
  Report Type: Spontaneous
  Country: GB (occurrence: None)
  Receive Date: 20131122
  Receipt Date: 20131122
  Transmission Date: 20140711
  Serious: Yes (Hospitalization, Other)
  Sender: FDA-Public Use
  Company Number: 2013/207

PATIENT
  Age: 55 Year
  Sex: Female

DRUGS (1)
  1. VENLAFAXINE [Suspect]
     Indication: FLUSHING

REACTIONS (14)
  - Cerebral vasoconstriction [None]
  - Headache [None]
  - Anterograde amnesia [None]
  - Subarachnoid haemorrhage [None]
  - Somnolence [None]
  - Disorientation [None]
  - Grand mal convulsion [None]
  - Hypoaesthesia [None]
  - Asthenia [None]
  - Headache [None]
  - Aphasia [None]
  - Balance disorder [None]
  - General physical health deterioration [None]
  - Altered state of consciousness [None]
